FAERS Safety Report 8818824 (Version 1)
Quarter: 2012Q4

REPORT INFORMATION
  Report Type: Spontaneous
  Country: US (occurrence: None)
  Receive Date: 20121004
  Receipt Date: 20121004
  Transmission Date: 20130627
  Serious: No
  Sender: FDA-Public Use
  Company Number: None

PATIENT
  Age: 29 Year
  Sex: Female
  Weight: 87.09 kg

DRUGS (2)
  1. BUPROPRION XL [Suspect]
     Indication: DEPRESSION
     Dates: start: 2008, end: 2011
  2. FLUOXETINE [Suspect]

REACTIONS (3)
  - Anger [None]
  - Anger [None]
  - Suicidal ideation [None]
